FAERS Safety Report 7793580-X (Version None)
Quarter: 2011Q4

REPORT INFORMATION
  Report Type: 
  Country: None (occurrence: None)
  Receive Date: 20111003
  Receipt Date: 20110928
  Transmission Date: 20120403
  Serious: Yes (Hospitalization)
  Sender: FDA-Public Use
  Company Number: PHHO2010JP05096

PATIENT

DRUGS (14)
  1. TASIGNA [Suspect]
     Dosage: 600 MG, QD
     Dates: start: 20110209
  2. BASEN [Concomitant]
  3. ARTZ [Concomitant]
  4. MAGNESIUM SULFATE [Concomitant]
  5. GLYBURIDE [Concomitant]
  6. SENNOSIDE [Concomitant]
  7. KETOPROFEN [Concomitant]
  8. PRAVASTATIN SODIUM [Concomitant]
  9. OMEPRAZOLE [Concomitant]
  10. TASIGNA [Suspect]
     Indication: CHRONIC MYELOID LEUKAEMIA
     Dosage: 600 MG, QD
     Route: 048
     Dates: start: 20080410, end: 20080708
  11. TASIGNA [Suspect]
     Dosage: 400 MG, QD
     Dates: start: 20080730, end: 20081028
  12. TASIGNA [Suspect]
     Dosage: NO TREATMENT RECEIVED
     Dates: start: 20110207, end: 20110208
  13. TASIGNA [Suspect]
     Dosage: 600 MG, QD
     Dates: start: 20081029, end: 20110206
  14. ALOSENN [Concomitant]

REACTIONS (8)
  - HYPOAESTHESIA [None]
  - AORTIC CALCIFICATION [None]
  - WOUND [None]
  - ARTERIOSCLEROSIS OBLITERANS [None]
  - ARTERIAL THROMBOSIS LIMB [None]
  - PAIN IN EXTREMITY [None]
  - BACK PAIN [None]
  - ANAEMIA [None]
